FAERS Safety Report 8049857-6 (Version None)
Quarter: 2012Q1

REPORT INFORMATION
  Report Type: 
  Country: None (occurrence: None)
  Receive Date: 20120117
  Receipt Date: 20120111
  Transmission Date: 20120608
  Serious: Yes (Death, Other)
  Sender: FDA-Public Use
  Company Number: US-BAYER-200940158NA

PATIENT
  Age: 74 Year
  Sex: Male
  Weight: 71.6 kg

DRUGS (29)
  1. TRASYLOL [Suspect]
     Indication: AORTIC SURGERY
     Dosage: 25 ML PER HOUR
     Route: 042
     Dates: start: 20071009, end: 20071009
  2. DIOVAN [Concomitant]
     Dosage: 320 MG, QD
     Route: 048
  3. PHENOBARBITAL TAB [Concomitant]
     Dosage: 32.4 MG FOUR TIME DAYS
     Route: 048
  4. HEPARIN [Concomitant]
     Dosage: UNK
     Route: 042
     Dates: start: 20071008, end: 20071008
  5. PLATELETS [Concomitant]
     Dosage: 2 U, ONCE
     Route: 042
     Dates: start: 20071008
  6. WHOLE BLOOD [Concomitant]
     Dosage: 600 ML, UNK
     Route: 042
     Dates: start: 20071008
  7. VANCOMYCIN [Concomitant]
  8. LEVOPHED [Concomitant]
     Dosage: UNK
     Dates: start: 20080326
  9. DOPAMINE HCL [Concomitant]
     Dosage: UNK
     Dates: start: 20071008, end: 20071008
  10. VANCOMYCIN [Concomitant]
     Dosage: 1 G, UNK
     Route: 042
     Dates: start: 20071008, end: 20071008
  11. LEVAQUIN [Concomitant]
     Dosage: 500 MG, UNK
     Route: 042
     Dates: start: 20071008, end: 20071008
  12. DILANTIN [Concomitant]
     Dosage: 100 MG, TID
     Route: 048
  13. NORVASC [Concomitant]
     Dosage: 10 MG, QD
     Route: 048
  14. PLAVIX [Concomitant]
     Dosage: 75 MG, UNK
     Route: 048
  15. NAPROXEN [Concomitant]
     Dosage: 375 MG, BID
     Route: 048
  16. EPINEPHRINE [Concomitant]
     Dosage: UNK
     Route: 042
     Dates: start: 20071008, end: 20071008
  17. TRASYLOL [Suspect]
     Indication: CORONARY ARTERY BYPASS
     Dosage: UNK
     Route: 042
     Dates: start: 20071008
  18. BUMEX [Concomitant]
     Dosage: 1MG TWICE PER DAY
     Dates: start: 20080326
  19. ANCEF [Concomitant]
     Dosage: 1 G, UNK
     Route: 042
     Dates: start: 20071008, end: 20071008
  20. DIGOXIN [Concomitant]
     Dosage: UNK
     Route: 042
  21. PHENYLEPHRINE HCL [Concomitant]
     Dosage: UNK
     Dates: start: 20080320
  22. HYDROCHLOROTHIAZIDE [Concomitant]
     Dosage: 25 MG, QD
     Route: 048
  23. AMIODARONE HCL [Concomitant]
     Dosage: UNK
     Route: 042
     Dates: start: 20071008, end: 20071008
  24. COREG [Concomitant]
     Indication: HEART RATE ABNORMAL
  25. CILOSTAZOL [Concomitant]
     Dosage: 100 MG, BID
     Route: 048
  26. ACETYLSALICYLIC ACID SRT [Concomitant]
     Dosage: 81 MG, UNK
     Route: 048
  27. IBUPROFEN [Concomitant]
     Dosage: 400 MG, PRN
     Route: 048
  28. KANAMYCIN [Concomitant]
     Dosage: TO STERILE FIELD
     Dates: start: 20071008, end: 20071008
  29. MANNITOL [Concomitant]
     Dosage: UNK
     Dates: start: 20071008, end: 20071008

REACTIONS (14)
  - ANHEDONIA [None]
  - MULTI-ORGAN FAILURE [None]
  - RENAL FAILURE [None]
  - ANXIETY [None]
  - PAIN [None]
  - PSYCHOLOGICAL TRAUMA [None]
  - RENAL IMPAIRMENT [None]
  - RENAL INJURY [None]
  - UNEVALUABLE EVENT [None]
  - FEAR [None]
  - INJURY [None]
  - EMOTIONAL DISTRESS [None]
  - DEATH [None]
  - STRESS [None]
